FAERS Safety Report 7393799-6 (Version None)
Quarter: 2011Q2

REPORT INFORMATION
  Report Type: 
  Country: None (occurrence: None)
  Receive Date: 20110405
  Receipt Date: 20110328
  Transmission Date: 20111010
  Serious: Yes (Hospitalization)
  Sender: FDA-Public Use
  Company Number: FR-ELI_LILLY_AND_COMPANY-FR201103007569

PATIENT
  Sex: Female

DRUGS (9)
  1. HALDOL [Concomitant]
     Indication: PSYCHOTIC DISORDER
     Dosage: 2.5 MG, QD
     Route: 048
  2. ZYPREXA [Suspect]
     Indication: PSYCHOTIC DISORDER
     Dosage: 10 MG, QD
     Route: 048
     Dates: start: 20100422, end: 20101206
  3. LIPANTHYL [Concomitant]
     Indication: DYSLIPIDAEMIA
     Dosage: 145 MG, QD
     Route: 048
  4. SEROPLEX [Concomitant]
     Indication: DEPRESSION
     Route: 048
  5. DAFLON [Concomitant]
     Dosage: 1 G, QD
     Route: 048
  6. AVLOCARDYL [Concomitant]
     Route: 048
  7. TEMESTA [Concomitant]
     Indication: ANXIETY
     Route: 048
  8. IMOVANE [Concomitant]
     Indication: INSOMNIA
     Dosage: 7.5 MG, QD
     Route: 048
  9. ACETAMINOPHEN [Concomitant]
     Indication: PAIN
     Route: 048

REACTIONS (1)
  - VENOUS THROMBOSIS LIMB [None]
